FAERS Safety Report 8209667-3 (Version None)
Quarter: 2012Q1

REPORT INFORMATION
  Report Type: 
  Country: None (occurrence: None)
  Receive Date: 20120314
  Receipt Date: 20120307
  Transmission Date: 20120608
  Serious: Yes (Hospitalization)
  Sender: FDA-Public Use
  Company Number: US-PFIZER INC-2008050349

PATIENT
  Sex: Male
  Weight: 79.093 kg

DRUGS (9)
  1. AXITINIB [Suspect]
     Indication: COLORECTAL CANCER METASTATIC
     Dosage: 5 MG, 2X/DAY
     Route: 048
     Dates: start: 20080220, end: 20080612
  2. OXALIPLATIN [Suspect]
     Indication: COLORECTAL CANCER METASTATIC
     Dosage: 160 MG (85 MG/KG), CYCLIC, EVERY 2 WEEKS
     Route: 042
     Dates: start: 20080220, end: 20080528
  3. LUNESTA [Concomitant]
     Route: 048
     Dates: start: 20080222
  4. BEVACIZUMAB [Suspect]
     Indication: COLORECTAL CANCER METASTATIC
     Dosage: 160 MG (2 MG/KG), CYCLIC, EVERY 2 WEEKS
     Route: 042
     Dates: start: 20080220, end: 20080528
  5. FLUOROURACIL [Suspect]
     Indication: COLORECTAL CANCER METASTATIC
     Dosage: 4212 MG (2400 MG/M2), CYCLIC, EVERY 2 WEEKS, INFUSION PUMP
     Route: 042
     Dates: start: 20080220, end: 20080530
  6. LEVAQUIN [Concomitant]
     Route: 048
     Dates: start: 20080611, end: 20080612
  7. LISINOPRIL [Concomitant]
     Route: 048
     Dates: start: 20080222
  8. LEUCOVORIN CALCIUM [Suspect]
     Indication: COLORECTAL CANCER METASTATIC
     Dosage: 750 MG (400 MG/KG), CYCLIC, EVERY 2 WEEKS
     Route: 042
     Dates: start: 20080220, end: 20080528
  9. FLUOROURACIL [Suspect]
     Dosage: 750 MG (400 MG/M2), CYCLIC, EVERY 2 WEEKS
     Route: 040
     Dates: start: 20080220, end: 20080528

REACTIONS (1)
  - FEBRILE NEUTROPENIA [None]
